FAERS Safety Report 20135203 (Version 2)
Quarter: 2021Q4

REPORT INFORMATION
  Report Type: Spontaneous
  Country: US (occurrence: US)
  Receive Date: 20211201
  Receipt Date: 20211207
  Transmission Date: 20220304
  Serious: No
  Sender: FDA-Public Use
  Company Number: US-GW PHARMA-202111USGW05847

PATIENT

DRUGS (2)
  1. EPIDIOLEX [Suspect]
     Active Substance: CANNABIDIOL
     Indication: Cerebral palsy
     Dosage: 240 MILLIGRAM
     Dates: start: 202104, end: 20210420
  2. EPIDIOLEX [Suspect]
     Active Substance: CANNABIDIOL
     Dosage: 480 MILLIGRAM
     Dates: start: 20210421

REACTIONS (4)
  - Self-destructive behaviour [Unknown]
  - Seizure [Unknown]
  - Aggression [Unknown]
  - Product use in unapproved indication [Unknown]

NARRATIVE: CASE EVENT DATE: 20210101
